FAERS Safety Report 8181813-X (Version None)
Quarter: 2012Q1

REPORT INFORMATION
  Report Type: 
  Country: None (occurrence: None)
  Receive Date: 20120302
  Receipt Date: 20120216
  Transmission Date: 20120608
  Serious: Yes (Other)
  Sender: FDA-Public Use
  Company Number: US-AMGEN-USASP2011040648

PATIENT
  Age: 7 Year
  Sex: Female
  Weight: 25.9 kg

DRUGS (5)
  1. NPLATE [Suspect]
     Indication: IDIOPATHIC THROMBOCYTOPENIC PURPURA
     Dosage: 10 MUG/KG, QWK
     Route: 058
     Dates: start: 20110301, end: 20110614
  2. PENICILLIN [Concomitant]
     Indication: PROPHYLAXIS
     Dosage: 5 MG, QD
     Route: 048
     Dates: start: 20101130
  3. DIAZEPAM [Concomitant]
     Indication: CONVULSION
     Dosage: 7.5 MG, PRN
     Route: 048
     Dates: start: 20100726
  4. LAMICTAL [Concomitant]
     Indication: CONVULSION
     Dosage: 4 UNIT, BID
     Route: 048
     Dates: start: 20100706, end: 20100730
  5. ETHOSUXIMIDE [Concomitant]
     Indication: CONVULSION
     Dosage: UNK UNK, BID
     Route: 048
     Dates: start: 20110208

REACTIONS (4)
  - CONTUSION [None]
  - DRUG INEFFECTIVE [None]
  - EXCORIATION [None]
  - FALL [None]
